FAERS Safety Report 8218809-5 (Version None)
Quarter: 2012Q1

REPORT INFORMATION
  Report Type: 
  Country: None (occurrence: None)
  Receive Date: 20120319
  Receipt Date: 20120313
  Transmission Date: 20120608
  Serious: Yes (Other)
  Sender: FDA-Public Use
  Company Number: PHEH2012US005784

PATIENT
  Sex: Female

DRUGS (3)
  1. CHEMOTHERAPEUTICS [Concomitant]
  2. GILENYA [Suspect]
     Indication: MULTIPLE SCLEROSIS
     Dosage: 0.5 MG, QD
     Route: 048
  3. TRAMADOL HCL [Concomitant]

REACTIONS (3)
  - LUNG NEOPLASM MALIGNANT [None]
  - ASTHENIA [None]
  - DRUG INEFFECTIVE [None]
